FAERS Safety Report 16521877 (Version 1)
Quarter: 2019Q3

REPORT INFORMATION
  Report Type: Spontaneous
  Country: US (occurrence: US)
  Receive Date: 20190703
  Receipt Date: 20190703
  Transmission Date: 20191004
  Serious: Yes (Hospitalization)
  Sender: FDA-Public Use
  Company Number: US-SA-2019SA178442

PATIENT
  Sex: Female

DRUGS (1)
  1. DUPIXENT [Suspect]
     Active Substance: DUPILUMAB
     Indication: ASTHMA
     Dosage: 300 MG,L QOW
     Route: 058
     Dates: start: 20190618

REACTIONS (3)
  - Muscle injury [Recovering/Resolving]
  - Patient-device incompatibility [Recovering/Resolving]
  - Abscess [Recovering/Resolving]
